FAERS Safety Report 9116092 (Version 1)
Quarter: 2013Q1

REPORT INFORMATION
  Report Type: Spontaneous
  Country: DK (occurrence: DK)
  Receive Date: 20130225
  Receipt Date: 20130225
  Transmission Date: 20140127
  Serious: Yes (Death, Hospitalization)
  Sender: FDA-Public Use
  Company Number: DK-ASTRAZENECA-2013SE11637

PATIENT
  Sex: Female

DRUGS (2)
  1. SEROQUEL PROLONG [Suspect]
     Indication: BIPOLAR DISORDER
     Route: 048
  2. SYCREST [Suspect]

REACTIONS (3)
  - Volvulus [Fatal]
  - Sepsis [Unknown]
  - Constipation [Unknown]
